FAERS Safety Report 9148605 (Version 1)
Quarter: 2013Q1

REPORT INFORMATION
  Report Type: Spontaneous
  Country: US (occurrence: US)
  Receive Date: 20130308
  Receipt Date: 20130308
  Transmission Date: 20140127
  Serious: No
  Sender: FDA-Public Use
  Company Number: US-009507513-1303USA002889

PATIENT
  Age: 52 Year
  Sex: Male
  Weight: 68.93 kg

DRUGS (5)
  1. BOCEPREVIR [Suspect]
     Indication: CHRONIC HEPATITIS C
     Dosage: UNK, TID
     Dates: start: 20110909
  2. RIBAVIRIN [Suspect]
     Indication: CHRONIC HEPATITIS C
     Dosage: 1200 MG, QD
     Dates: start: 20110909
  3. PEGINTERFERON ALFA-2A [Suspect]
     Indication: CHRONIC HEPATITIS C
     Dosage: 180 MICROGRAM, QW
     Route: 058
     Dates: start: 20110909
  4. COMBIVENT [Concomitant]
     Route: 055
  5. ADVAIR [Concomitant]
     Route: 055

REACTIONS (36)
  - Oral fungal infection [Unknown]
  - Abdominal distension [Unknown]
  - Ocular hyperaemia [Recovered/Resolved]
  - Unevaluable event [Unknown]
  - Dyspnoea [Unknown]
  - Immune system disorder [Unknown]
  - Malaise [Unknown]
  - Limb injury [Unknown]
  - Impaired healing [Unknown]
  - Oral mucosal discolouration [Unknown]
  - Eye pain [Unknown]
  - Headache [Unknown]
  - Haemorrhage [Unknown]
  - Pain in extremity [Unknown]
  - Haematotoxicity [Unknown]
  - Musculoskeletal discomfort [Unknown]
  - Feeling abnormal [Unknown]
  - Drug dose omission [Unknown]
  - Hepatitis B DNA decreased [Unknown]
  - Hepatitis C RNA increased [Unknown]
  - Haemorrhage [Recovered/Resolved]
  - Local swelling [Recovered/Resolved]
  - Vision blurred [Unknown]
  - Vomiting [Recovered/Resolved]
  - Nausea [Unknown]
  - Vomiting [Unknown]
  - Fatigue [Unknown]
  - Asthenia [Unknown]
  - Arthralgia [Recovered/Resolved]
  - Dizziness [Unknown]
  - Red blood cell count decreased [Unknown]
  - Arthralgia [Recovered/Resolved]
  - Arthralgia [Recovered/Resolved]
  - Fatigue [Unknown]
  - Arthralgia [Recovered/Resolved]
  - Arthralgia [Recovered/Resolved]
